FAERS Safety Report 7320494-1 (Version None)
Quarter: 2011Q1

REPORT INFORMATION
  Report Type: 
  Country: None (occurrence: None)
  Receive Date: 20110228
  Receipt Date: 20110216
  Transmission Date: 20110831
  Serious: Yes (Hospitalization)
  Sender: FDA-Public Use
  Company Number: Z0006257A

PATIENT
  Sex: Male
  Weight: 63.3 kg

DRUGS (14)
  1. ALLOPURINOL [Concomitant]
     Dosage: 100MG IN THE MORNING
     Route: 048
     Dates: start: 20091218
  2. FLUTICASONE PROPIONATE [Concomitant]
     Indication: EPISTAXIS
     Route: 065
     Dates: start: 20100208
  3. LEVOTHYROXINE SODIUM [Concomitant]
     Dosage: 75MCG PER DAY
     Route: 048
     Dates: start: 20100514
  4. FENOFIBRATE [Concomitant]
     Dosage: 134MG PER DAY
     Route: 048
     Dates: start: 20091218
  5. HEPARIN [Concomitant]
     Route: 062
     Dates: start: 20091228
  6. PAZOPANIB [Suspect]
     Indication: RENAL CELL CARCINOMA
     Dosage: 800MG PER DAY
     Route: 048
     Dates: start: 20091224
  7. LOPERAMIDE HYDROCHLORIDE [Concomitant]
     Dosage: 1MG THREE TIMES PER DAY
     Route: 048
     Dates: start: 20100729
  8. LATANOPROST [Concomitant]
     Indication: GLAUCOMA
     Dosage: 1DROP PER DAY
     Route: 047
     Dates: start: 20100910
  9. ITOPRIDE HYDROCHLORIDE [Concomitant]
     Dosage: 50MG BEFORE MEALS
     Route: 048
     Dates: start: 20091231
  10. AMLODIPINE BESILATE [Concomitant]
     Indication: HYPERTENSION
     Dosage: 5MG IN THE MORNING
     Route: 048
     Dates: start: 20100105
  11. RENIVACE [Concomitant]
     Indication: HYPERTENSION
     Dosage: 5MG IN THE MORNING
     Route: 048
     Dates: start: 20100819
  12. ENALAPRIL MALEATE [Concomitant]
     Indication: HYPERTENSION
     Dosage: 10MG IN THE MORNING
     Route: 048
     Dates: start: 20091228
  13. EZETIMIBE [Concomitant]
     Dosage: 10MG IN THE MORNING
     Route: 048
     Dates: start: 20091218
  14. FAMOTIDINE [Concomitant]
     Dosage: 20MG TWICE PER DAY
     Route: 048
     Dates: start: 20100102

REACTIONS (1)
  - ILEUS [None]
